FAERS Safety Report 9516122 (Version 1)
Quarter: 2013Q1

REPORT INFORMATION
  Report Type: Spontaneous
  Country: US (occurrence: None)
  Receive Date: 20130305
  Receipt Date: 20130305
  Transmission Date: 20140127
  Serious: Yes (Other)
  Sender: FDA-Public Use
  Company Number: 163-21880-12120144

PATIENT
  Age: 81 Year
  Sex: Female
  Weight: 74.39 kg

DRUGS (11)
  1. REVLIMID (LENALIDOMIDE) (15 MILLIGRAM, CAPSULES) [Suspect]
     Indication: PLASMA CELL MYELOMA
     Dosage: 15 MG, QOD X 21 OF 28 DAYS, PO
     Route: 048
     Dates: start: 20100429
  2. BACTRIM DS (BACTRIM) [Concomitant]
  3. FLUTICASONE (FLUTICASONE) (NASAL DROPS (INCLUDING NASAL SPRAY) [Concomitant]
  4. DEXAMETHASONE (DEXAMETHASONE) [Concomitant]
  5. SYNTHROID (LEVOTHYROXINE SODIUM) [Concomitant]
  6. CIPRO (CIPROFLOXACIN) [Concomitant]
  7. CHOLESTYRAMINE (COLESTYRAMINE) [Concomitant]
  8. NEXIUM [Concomitant]
  9. LOMOTIL (LOMOTIL) [Concomitant]
  10. UROGESIC (PHENAZOPYRIDINE HYDROCHLORIDE) [Concomitant]
  11. ENALAPRIL [Concomitant]

REACTIONS (1)
  - Nasopharyngitis [None]
